FAERS Safety Report 8135926-9 (Version None)
Quarter: 2012Q1

REPORT INFORMATION
  Report Type: 
  Country: None (occurrence: None)
  Receive Date: 20120214
  Receipt Date: 20120209
  Transmission Date: 20120608
  Serious: Yes (Hospitalization, Other)
  Sender: FDA-Public Use
  Company Number: US-PFIZER INC-2011197818

PATIENT
  Sex: Male

DRUGS (2)
  1. ADDERALL 5 [Concomitant]
     Indication: ATTENTION DEFICIT/HYPERACTIVITY DISORDER
     Dosage: UNK
  2. CHANTIX [Suspect]
     Indication: SMOKING CESSATION THERAPY
     Dosage: STARTER PACK, UNK
     Dates: start: 20090727, end: 20090806

REACTIONS (10)
  - ANXIETY [None]
  - SUICIDE ATTEMPT [None]
  - DELUSION [None]
  - INTENTIONAL OVERDOSE [None]
  - IRRITABILITY [None]
  - SUICIDAL IDEATION [None]
  - MOOD SWINGS [None]
  - ANGER [None]
  - INTENTIONAL SELF-INJURY [None]
  - DEPRESSION [None]
